FAERS Safety Report 7306281-9 (Version None)
Quarter: 2011Q1

REPORT INFORMATION
  Report Type: 
  Country: None (occurrence: None)
  Receive Date: 20110222
  Receipt Date: 20110214
  Transmission Date: 20110831
  Serious: Yes (Other)
  Sender: FDA-Public Use
  Company Number: PHHY2011BR12996

PATIENT
  Sex: Male

DRUGS (1)
  1. STALEVO 100 [Suspect]
     Dosage: 150/37.5/200  MG
     Route: 048

REACTIONS (2)
  - WALKING DISABILITY [None]
  - GASTROINTESTINAL CARCINOMA [None]
